FAERS Safety Report 9984380 (Version 1)
Quarter: 2014Q1

REPORT INFORMATION
  Report Type: Report from Study
  Country: US (occurrence: US)
  Receive Date: 20140307
  Receipt Date: 20140307
  Transmission Date: 20141002
  Serious: No
  Sender: FDA-Public Use
  Company Number: US-ABBVIE-13P-163-1181987-00

PATIENT
  Age: 43 Year
  Sex: Female
  Weight: 90.8 kg

DRUGS (7)
  1. HUMIRA [Suspect]
     Indication: CROHN^S DISEASE
     Dosage: ONE DOSE
     Dates: start: 201201, end: 201201
  2. HUMIRA [Suspect]
     Dosage: ONE DOSE
     Dates: start: 2012, end: 2012
  3. HUMIRA [Suspect]
     Dates: start: 2012
  4. LIALDA [Concomitant]
     Indication: CROHN^S DISEASE
  5. IRON [Concomitant]
     Indication: ANAEMIA
  6. IRON [Concomitant]
  7. IRON [Concomitant]

REACTIONS (1)
  - Tuberculin test positive [Not Recovered/Not Resolved]
